FAERS Safety Report 4393014-1 (Version None)
Quarter: 2004Q3

REPORT INFORMATION
  Report Type: 
  Country: None (occurrence: None)
  Receive Date: 20040708
  Receipt Date: 20040316
  Transmission Date: 20050211
  Serious: Yes (Other)
  Sender: FDA-Public Use
  Company Number: FR-GLAXOSMITHKLINE-B0327791A

PATIENT
  Age: 28 Year
  Sex: Female

DRUGS (1)
  1. ALBUTEROL [Suspect]
     Route: 048
     Dates: start: 20040214, end: 20040329

REACTIONS (3)
  - CAESAREAN SECTION [None]
  - PREMATURE BABY [None]
  - UMBILICAL CORD AROUND NECK [None]
